FAERS Safety Report 7339911-6 (Version None)
Quarter: 2011Q1

REPORT INFORMATION
  Report Type: 
  Country: None (occurrence: None)
  Receive Date: 20110228
  Receipt Date: 20110217
  Transmission Date: 20110831
  Serious: Yes (Hospitalization, Other)
  Sender: FDA-Public Use
  Company Number: 027682

PATIENT
  Sex: Female
  Weight: 53.7 kg

DRUGS (1)
  1. LACOSAMIDE [Suspect]
     Indication: EPILEPSY
     Dosage: 400 MG ORAL
     Route: 048
     Dates: start: 20100303

REACTIONS (1)
  - GRAND MAL CONVULSION [None]
